FAERS Safety Report 21167532 (Version 1)
Quarter: 2022Q3

REPORT INFORMATION
  Report Type: Spontaneous
  Country: CN (occurrence: CN)
  Receive Date: 20220803
  Receipt Date: 20220803
  Transmission Date: 20221026
  Serious: Yes (Other)
  Sender: FDA-Public Use
  Company Number: CN-MLMSERVICE-20220714-3671728-1

PATIENT
  Age: 44 Year
  Sex: Male

DRUGS (11)
  1. GEMCITABINE HYDROCHLORIDE [Suspect]
     Active Substance: GEMCITABINE HYDROCHLORIDE
     Indication: Metastases to lung
     Dosage: 1  G M2, DAYS 1AND 8, EVERY 3 WEEKS
     Route: 065
     Dates: start: 20201129
  2. ERBITUX [Suspect]
     Active Substance: CETUXIMAB
     Indication: Metastases to bone
     Dosage: 250 MG/M2 WEEKLY, CYCLICAL
     Route: 065
     Dates: start: 20201129
  3. ERBITUX [Suspect]
     Active Substance: CETUXIMAB
     Indication: Metastases to lymph nodes
  4. ERBITUX [Suspect]
     Active Substance: CETUXIMAB
     Indication: Metastases to lung
  5. ERBITUX [Suspect]
     Active Substance: CETUXIMAB
     Indication: Metastases to bone marrow
  6. ERBITUX [Suspect]
     Active Substance: CETUXIMAB
     Indication: Nasopharyngeal cancer
  7. CISPLATIN [Suspect]
     Active Substance: CISPLATIN
     Indication: Nasopharyngeal cancer
     Dosage: 50 MG/M2 WEEKLY, CYCLICAL
     Route: 065
  8. CISPLATIN [Suspect]
     Active Substance: CISPLATIN
     Indication: Metastases to lymph nodes
  9. CISPLATIN [Suspect]
     Active Substance: CISPLATIN
     Indication: Metastases to lung
  10. CISPLATIN [Suspect]
     Active Substance: CISPLATIN
     Indication: Metastases to bone marrow
  11. CISPLATIN [Suspect]
     Active Substance: CISPLATIN
     Indication: Metastases to bone

REACTIONS (2)
  - Leukopenia [Recovered/Resolved]
  - Thrombocytopenia [Recovered/Resolved]
